FAERS Safety Report 11175564 (Version 1)
Quarter: 2015Q2

REPORT INFORMATION
  Report Type: Spontaneous
  Country: FR (occurrence: FR)
  Receive Date: 20150609
  Receipt Date: 20150609
  Transmission Date: 20150821
  Serious: Yes (Hospitalization)
  Sender: FDA-Public Use
  Company Number: FR-ASTRAZENECA-2015SE55194

PATIENT
  Age: 85 Year
  Sex: Female

DRUGS (26)
  1. INEXIUM [Suspect]
     Active Substance: ESOMEPRAZOLE
     Route: 048
  2. VELCADE [Suspect]
     Active Substance: BORTEZOMIB
     Indication: PLASMA CELL MYELOMA
     Route: 065
     Dates: start: 20150330
  3. VELCADE [Suspect]
     Active Substance: BORTEZOMIB
     Indication: PLASMA CELL MYELOMA
     Dosage: 1 MG/M2
     Route: 065
     Dates: start: 20150416
  4. ZELITREX [Concomitant]
     Active Substance: VALACYCLOVIR HYDROCHLORIDE
  5. MOVICOL [Concomitant]
     Active Substance: POLYETHYLENE GLYCOL 3350\POTASSIUM CHLORIDE\SODIUM BICARBONATE\SODIUM CHLORIDE
     Dosage: 2 SACHETS AT MORNING
  6. DEXAMETHASONE. [Concomitant]
     Active Substance: DEXAMETHASONE
  7. ENDOXAN [Concomitant]
     Active Substance: CYCLOPHOSPHAMIDE
  8. LEVOTHYROX [Concomitant]
     Active Substance: LEVOTHYROXINE
  9. LEXOMIL [Concomitant]
     Active Substance: BROMAZEPAM
  10. LOXEN [Concomitant]
     Active Substance: NICARDIPINE HYDROCHLORIDE
  11. VELCADE [Suspect]
     Active Substance: BORTEZOMIB
     Indication: PLASMA CELL MYELOMA
     Dosage: 1.3 MG/M2 PER WEEK
     Route: 065
     Dates: start: 201310
  12. STILNOX [Concomitant]
     Active Substance: ZOLPIDEM TARTRATE
     Dosage: 0.5 DF AT NIGHT F NEEDED
  13. KARDEGIC [Concomitant]
     Active Substance: ASPIRIN LYSINE
  14. LEVETIRACETAM. [Concomitant]
     Active Substance: LEVETIRACETAM
  15. BACTRIM [Concomitant]
     Active Substance: SULFAMETHOXAZOLE\TRIMETHOPRIM
  16. EDUCTYL [Concomitant]
     Active Substance: POTASSIUM BITARTRATE\SODIUM BICARBONATE
     Dosage: 1 SUPPOSITORY AT MORNING
  17. VELCADE [Suspect]
     Active Substance: BORTEZOMIB
     Indication: PLASMA CELL MYELOMA
     Dosage: 1.3 MG/M2
     Route: 065
     Dates: start: 20150327
  18. OXYNORMORO [Suspect]
     Active Substance: OXYCODONE
     Route: 065
  19. SYMBICORT [Concomitant]
     Active Substance: BUDESONIDE\FORMOTEROL FUMARATE DIHYDRATE
     Dosage: 1 PUFF BIDAILY
  20. CITALOPRAM [Concomitant]
     Active Substance: CITALOPRAM HYDROBROMIDE
  21. FLECAINE [Concomitant]
     Active Substance: FLECAINIDE
  22. TAHOR [Concomitant]
     Active Substance: ATORVASTATIN CALCIUM
  23. DOLIPRANE [Concomitant]
     Active Substance: ACETAMINOPHEN
  24. GEL LARMES OPHTALMIQUE [Concomitant]
     Dosage: 1 APPLICATION AT MORNING MIDDAY AND NIGHT
  25. LATANOPROST. [Concomitant]
     Active Substance: LATANOPROST
     Dosage: 1 DROP BIDAILY IN BOTH EYES
  26. CALCIDIA [Concomitant]
     Active Substance: CALCIUM POLYCARBOPHIL
     Dosage: 1 SACHET AT MIDDAY

REACTIONS (1)
  - Partial seizures [Recovered/Resolved]

NARRATIVE: CASE EVENT DATE: 20150401
